FAERS Safety Report 7660662-2 (Version None)
Quarter: 2011Q3

REPORT INFORMATION
  Report Type: 
  Country: None (occurrence: None)
  Receive Date: 20110805
  Receipt Date: 20101117
  Transmission Date: 20111222
  Serious: No
  Sender: FDA-Public Use
  Company Number: US-ABBOTT-10P-163-0686744-00

PATIENT
  Sex: Female
  Weight: 69.462 kg

DRUGS (8)
  1. NIASPAN [Suspect]
     Indication: BLOOD CHOLESTEROL INCREASED
     Dates: start: 20101027
  2. SIMVASTATIN [Concomitant]
     Indication: BLOOD CHOLESTEROL INCREASED
  3. METOPROLOL TARTRATE [Concomitant]
     Indication: HYPERTENSION
  4. SINGULAIR [Concomitant]
     Indication: HYPERSENSITIVITY
  5. PRILOSEC [Concomitant]
     Indication: GASTRIC ULCER
  6. CLARITIN [Concomitant]
     Indication: ASTHMA
  7. AZELASTINE NASAL SPRAY [Concomitant]
     Indication: HYPERSENSITIVITY
  8. VENTOLIN DS [Concomitant]
     Indication: ASTHMA

REACTIONS (5)
  - ERYTHEMA [None]
  - PRURITUS [None]
  - HYPERHIDROSIS [None]
  - HEADACHE [None]
  - FEELING HOT [None]
